FAERS Safety Report 11107596 (Version 3)
Quarter: 2015Q2

REPORT INFORMATION
  Report Type: Report from Study
  Country: FR (occurrence: FR)
  Receive Date: 20150512
  Receipt Date: 20150604
  Transmission Date: 20150821
  Serious: Yes (Hospitalization)
  Sender: FDA-Public Use
  Company Number: FR-CELGENE-FRA-2015050879

PATIENT
  Age: 77 Year
  Sex: Male
  Weight: 70 kg

DRUGS (7)
  1. DEPAKINE [Suspect]
     Active Substance: VALPROATE SODIUM
     Route: 048
     Dates: start: 20150425, end: 20150425
  2. AZACITIDINE. [Suspect]
     Active Substance: AZACITIDINE
     Indication: MYELODYSPLASTIC SYNDROME
     Dosage: 75 MILLIGRAM/SQ. METER
     Route: 058
     Dates: start: 20150420, end: 20150425
  3. DEPAKINE [Suspect]
     Active Substance: VALPROATE SODIUM
     Route: 048
     Dates: start: 20150421, end: 20150424
  4. DEPAKINE [Suspect]
     Active Substance: VALPROATE SODIUM
     Route: 048
     Dates: start: 20150420, end: 20150420
  5. DEPAKINE [Suspect]
     Active Substance: VALPROATE SODIUM
     Indication: MYELODYSPLASTIC SYNDROME
     Route: 048
     Dates: start: 20150420, end: 20150425
  6. IMOVANE [Suspect]
     Active Substance: ZOPICLONE
     Indication: INSOMNIA
     Route: 048
     Dates: start: 20150421, end: 20150421
  7. IMOVANE [Suspect]
     Active Substance: ZOPICLONE
     Dosage: 1
     Route: 048
     Dates: start: 20150421, end: 20150421

REACTIONS (1)
  - Toxic encephalopathy [Recovered/Resolved]

NARRATIVE: CASE EVENT DATE: 20150425
